FAERS Safety Report 10086566 (Version 1)
Quarter: 2014Q2

REPORT INFORMATION
  Report Type: Spontaneous
  Country: IE (occurrence: IE)
  Receive Date: 20140418
  Receipt Date: 20140418
  Transmission Date: 20141212
  Serious: Yes (Other)
  Sender: FDA-Public Use
  Company Number: IE-PFIZER INC-2014104632

PATIENT
  Age: 79 Year
  Sex: Male

DRUGS (10)
  1. DALACIN [Suspect]
     Dosage: 300 MG, 3X/DAY
     Route: 048
     Dates: start: 20140318, end: 20140326
  2. WARFARIN [Interacting]
     Indication: ANTICOAGULANT THERAPY
     Dosage: AS PER INR
  3. FRUMIL [Concomitant]
     Indication: BLOOD PRESSURE
     Dosage: ONCE DAILY
  4. RAMIPRIL [Concomitant]
     Indication: BLOOD PRESSURE
     Dosage: 5 MG, 1X/DAY
  5. METFORMIN [Concomitant]
     Indication: DIABETES MELLITUS
     Dosage: 850 (UNITS NOT PROVIDED), 3X/DAY
  6. DALMAPAM [Concomitant]
     Indication: SLEEP DISORDER
     Dosage: 30 MG, UNK
  7. DIAGLYC [Concomitant]
     Indication: DIABETES MELLITUS
     Dosage: 30 MG, 4X/DAY
  8. PRAVASTATIN [Concomitant]
     Indication: BLOOD CHOLESTEROL
     Dosage: 20 MG, 1X/DAY, AT NIGHT
  9. BISOP [Concomitant]
     Indication: BLOOD PRESSURE
     Dosage: 10 MG, 1X/DAY
  10. IXPRIM [Concomitant]
     Dosage: 37.5 (UNITS NOT PROVIDED), 4X/DAY
     Dates: start: 20140307, end: 20140312

REACTIONS (2)
  - Drug interaction [Not Recovered/Not Resolved]
  - International normalised ratio increased [Not Recovered/Not Resolved]
